FAERS Safety Report 7273845-0 (Version None)
Quarter: 2011Q1

REPORT INFORMATION
  Report Type: 
  Country: None (occurrence: None)
  Receive Date: 20110203
  Receipt Date: 20110121
  Transmission Date: 20110831
  Serious: Yes (Hospitalization, Other)
  Sender: FDA-Public Use
  Company Number: US-ELI_LILLY_AND_COMPANY-US201006006892

PATIENT
  Sex: Female

DRUGS (21)
  1. SYNTHROID [Concomitant]
     Dosage: 0.088 MG, DAILY (1/D)
  2. LYRICA [Concomitant]
     Dosage: 1 D/F, AT NIGHT
  3. VITAMIN D [Concomitant]
     Dosage: 50000 IU, WEEKLY (1/W)
  4. WARFARIN [Concomitant]
     Dosage: 5 MG, 5/W
  5. ENALAPRIL MALEATE [Concomitant]
     Dosage: 10 MG, 2/D
  6. CALCIUM [Concomitant]
     Dosage: 500 MG, 2/D
  7. ASPIRIN [Concomitant]
     Dosage: 81 MG, UNK
  8. HYDRALAZINE [Concomitant]
     Dosage: 50 MG, 3/D
  9. NADOLOL [Concomitant]
     Dosage: 40 MG, DAILY (1/D)
  10. CLONAZEPAM [Concomitant]
     Dosage: 0.5 MG, DAILY (1/D)
  11. FORTEO [Suspect]
     Indication: OSTEOPOROSIS
     Dosage: 20 UG, DAILY (1/D)
     Dates: start: 20100101
  12. LOSARTAN POTASSIUM [Concomitant]
     Dosage: 100 MG, DAILY (1/D)
  13. POTASSIUM [Concomitant]
     Dosage: 20 MEQ, DAILY (1/D)
  14. FORTEO [Suspect]
     Dosage: 20 UG, DAILY (1/D)
  15. WARFARIN [Concomitant]
     Dosage: 2.5 MG, 2/W
  16. IRON [Concomitant]
     Dosage: 65 MG, DAILY (1/D)
  17. CATAPRES /00171101/ [Concomitant]
  18. COZAAR [Concomitant]
     Dosage: 30 MG, DAILY (1/D)
  19. LASIX [Concomitant]
     Dosage: 40 MG, 2/D
  20. AMIODARONE [Concomitant]
     Dosage: 200 MG, DAILY (1/D)
  21. TRAMADOL HCL [Concomitant]
     Indication: PAIN
     Dosage: UNK, AS NEEDED

REACTIONS (13)
  - PAIN IN EXTREMITY [None]
  - MOVEMENT DISORDER [None]
  - MUSCLE SPASMS [None]
  - THROMBOSIS [None]
  - MUSCULAR WEAKNESS [None]
  - PERONEAL NERVE PALSY [None]
  - VISUAL IMPAIRMENT [None]
  - HERPES ZOSTER [None]
  - EYE HAEMORRHAGE [None]
  - MACULAR DEGENERATION [None]
  - NERVE COMPRESSION [None]
  - VITAMIN D DECREASED [None]
  - ARTHRALGIA [None]
